FAERS Safety Report 18418750 (Version 1)
Quarter: 2020Q4

REPORT INFORMATION
  Report Type: Spontaneous
  Country: US (occurrence: US)
  Receive Date: 20201023
  Receipt Date: 20201023
  Transmission Date: 20210114
  Serious: Yes (Hospitalization, Other)
  Sender: FDA-Public Use
  Company Number: US-LUPIN PHARMACEUTICALS INC.-2020-05633

PATIENT
  Age: 20 Year
  Sex: Female

DRUGS (3)
  1. MISOPROSTOL. [Suspect]
     Active Substance: MISOPROSTOL
     Dosage: 400 MICROGRAM, UNTIL DELIVERY (MAXIMUM OF 5 DOSES)
     Route: 065
  2. MIFEPRISTONE [Suspect]
     Active Substance: MIFEPRISTONE
     Indication: ABORTION
     Dosage: 200 MILLIGRAM (PRIOR TO ADMISSION)
     Route: 048
  3. MISOPROSTOL. [Suspect]
     Active Substance: MISOPROSTOL
     Indication: ABORTION
     Dosage: 800 MICROGRAM (AT ADMISSION)
     Route: 067

REACTIONS (4)
  - Exposure during pregnancy [Unknown]
  - Anaemia [Unknown]
  - Pulmonary embolism [Unknown]
  - Pneumonia [Unknown]
